FAERS Safety Report 9594389 (Version 1)
Quarter: 2013Q3

REPORT INFORMATION
  Report Type: Spontaneous
  Country: US (occurrence: None)
  Receive Date: 20130923
  Receipt Date: 20130923
  Transmission Date: 20140515
  Serious: Yes (Hospitalization)
  Sender: FDA-Public Use
  Company Number: 2013STPI000121

PATIENT
  Age: 63 Year
  Sex: Male

DRUGS (7)
  1. MATULANE (PROCARBAZINE HYDROCHLORIDE) CAPSULE, 50MG [Suspect]
     Indication: LYMPHOMA
     Route: 048
     Dates: start: 20121213
  2. BLEOMYCIN SULFATE [Suspect]
  3. ETOPOSIDE (ETOPOSIDE) [Suspect]
     Indication: LYMPHOMA
  4. ADRIAMYCIN [Suspect]
     Indication: LYMPHOMA
  5. CYCLOPHOSPHAMIDE [Suspect]
     Indication: LYMPHOMA
  6. ONCOVIN [Suspect]
     Indication: LYMPHOMA
  7. PREDNISONE (PREDNISONE) [Suspect]
     Indication: LYMPHOMA

REACTIONS (1)
  - Pancytopenia [None]
